FAERS Safety Report 15804121 (Version 1)
Quarter: 2019Q1

REPORT INFORMATION
  Report Type: Report from Study
  Country: US (occurrence: US)
  Receive Date: 20190109
  Receipt Date: 20190109
  Transmission Date: 20190417
  Serious: Yes (Other)
  Sender: FDA-Public Use
  Company Number: US-BAYER-2018-226315

PATIENT
  Age: 58 Year
  Sex: Female

DRUGS (1)
  1. STIVARGA [Suspect]
     Active Substance: REGORAFENIB
     Indication: RECTAL CANCER
     Dosage: 80 MG, QD FOR 21 DAYS
     Dates: start: 20181121

REACTIONS (8)
  - Diarrhoea [None]
  - Off label use [None]
  - Dry mouth [Not Recovered/Not Resolved]
  - Thirst [None]
  - Dry skin [Not Recovered/Not Resolved]
  - Cystitis [None]
  - Mouth ulceration [Not Recovered/Not Resolved]
  - Diarrhoea [Recovering/Resolving]

NARRATIVE: CASE EVENT DATE: 20181121
